FAERS Safety Report 24695840 (Version 1)
Quarter: 2024Q4

REPORT INFORMATION
  Report Type: Spontaneous
  Country: DE (occurrence: DE)
  Receive Date: 20241204
  Receipt Date: 20241204
  Transmission Date: 20250115
  Serious: Yes (Life-Threatening, Other)
  Sender: ALEXION PHARMACEUTICALS
  Company Number: DE-ASTRAZENECA-202411GLO025991DE

PATIENT
  Age: 35 Year

DRUGS (2)
  1. QUETIAPINE FUMARATE [Suspect]
     Active Substance: QUETIAPINE FUMARATE
     Indication: Depression
     Dosage: 300 MILLIGRAM, 4 TABLETS
  2. FLUPHENAZINE [Concomitant]
     Active Substance: FLUPHENAZINE
     Indication: Psychotic disorder

REACTIONS (4)
  - Toxicity to various agents [Recovering/Resolving]
  - Tachycardia [Recovering/Resolving]
  - Agitation [Recovering/Resolving]
  - Drug abuse [Recovering/Resolving]
